FAERS Safety Report 5041030-9 (Version None)
Quarter: 2006Q2

REPORT INFORMATION
  Report Type: 
  Country: None (occurrence: None)
  Receive Date: 20060629
  Receipt Date: 20060629
  Transmission Date: 20061013
  Serious: Yes (Life-Threatening, Other)
  Sender: FDA-Public Use
  Company Number: None

PATIENT
  Age: 71 Year
  Sex: Male

DRUGS (1)
  1. VARDENAFIL [Suspect]
     Dosage: 10 MG UD PO
     Route: 048
     Dates: start: 20060502, end: 20060512

REACTIONS (1)
  - HEADACHE [None]
